FAERS Safety Report 5928181-9 (Version None)
Quarter: 2008Q4

REPORT INFORMATION
  Report Type: 
  Country: None (occurrence: None)
  Receive Date: 20081022
  Receipt Date: 20081022
  Transmission Date: 20090506
  Serious: Yes (Death)
  Sender: FDA-Public Use
  Company Number: None

PATIENT
  Age: 59 Year
  Sex: Female
  Weight: 81.6475 kg

DRUGS (2)
  1. MORPHINE SULFATE [Suspect]
     Indication: INTERVERTEBRAL DISC DEGENERATION
     Dosage: 60MG TID PO
     Route: 048
  2. MORPHINE SULFATE [Suspect]
     Indication: PAIN
     Dosage: 60MG TID PO
     Route: 048

REACTIONS (6)
  - FEELING ABNORMAL [None]
  - LETHARGY [None]
  - OVERDOSE [None]
  - PRODUCT QUALITY ISSUE [None]
  - STUPOR [None]
  - URINARY INCONTINENCE [None]
